FAERS Safety Report 8317934 (Version 2)
Quarter: 2013Q1

REPORT INFORMATION
  Report Type: Spontaneous
  Country: US (occurrence: US)
  Receive Date: 20120102
  Receipt Date: 20130104
  Transmission Date: 20140127
  Serious: Yes (Other)
  Sender: FDA-Public Use
  Company Number: US-ROCHE-802168

PATIENT
  Age: 19 Year
  Sex: Female
  Weight: 74.91 kg

DRUGS (3)
  1. ACCUTANE [Suspect]
     Indication: ACNE
     Dosage: FOR 04 MONTHS
     Route: 048
     Dates: start: 1997, end: 1998
  2. ACCUTANE [Suspect]
     Route: 048
     Dates: start: 200010, end: 200104
  3. ORTHO TRI CYCLEN [Concomitant]

REACTIONS (8)
  - Crohn^s disease [Unknown]
  - Ileal stenosis [Unknown]
  - Dry skin [Unknown]
  - Lip dry [Unknown]
  - Headache [Recovered/Resolved]
  - Blood triglycerides increased [Unknown]
  - Bronchitis [Unknown]
  - Irritable bowel syndrome [Unknown]
